FAERS Safety Report 11024259 (Version 1)
Quarter: 2015Q2

REPORT INFORMATION
  Report Type: Spontaneous
  Country: FR (occurrence: FR)
  Receive Date: 20150414
  Receipt Date: 20150414
  Transmission Date: 20150821
  Serious: Yes (Hospitalization)
  Sender: FDA-Public Use
  Company Number: FR-ROCHE-1562260

PATIENT
  Age: 86 Year
  Sex: Male

DRUGS (5)
  1. ROCEPHINE [Suspect]
     Active Substance: CEFTRIAXONE SODIUM
     Indication: APPENDICITIS PERFORATED
     Route: 042
     Dates: start: 20150103, end: 20150109
  2. GENTAMICINE [Suspect]
     Active Substance: GENTAMICIN
     Indication: APPENDICITIS PERFORATED
     Route: 042
     Dates: start: 20150103, end: 20150108
  3. SIMVASTATINE [Concomitant]
     Active Substance: SIMVASTATIN
  4. COUMADINE [Concomitant]
     Active Substance: WARFARIN SODIUM
  5. LASILIX [Concomitant]
     Active Substance: FUROSEMIDE

REACTIONS (1)
  - Acute kidney injury [Unknown]

NARRATIVE: CASE EVENT DATE: 20150107
